FAERS Safety Report 21082451 (Version 1)
Quarter: 2022Q3

REPORT INFORMATION
  Report Type: Spontaneous
  Country: US (occurrence: US)
  Receive Date: 20220714
  Receipt Date: 20220714
  Transmission Date: 20221027
  Serious: No
  Sender: FDA-Public Use
  Company Number: US-PFIZER INC-202200949642

PATIENT
  Age: 81 Year
  Sex: Female
  Weight: 54.43 kg

DRUGS (2)
  1. PAXLOVID [Suspect]
     Active Substance: NIRMATRELVIR\RITONAVIR
     Indication: COVID-19 treatment
     Dosage: [PF-07321332 300 MG]/[RITONAVIR 100 MG]; 2X/DAY
     Route: 048
     Dates: start: 20220709
  2. ATORVASTATIN [Concomitant]
     Active Substance: ATORVASTATIN
     Indication: Lipid metabolism disorder
     Dosage: 20 MG, STOPPED IT AS SHE WAS TOLD BY HER DOCTOR

REACTIONS (3)
  - Dysgeusia [Not Recovered/Not Resolved]
  - Breath odour [Unknown]
  - Nausea [Unknown]

NARRATIVE: CASE EVENT DATE: 20220709
